FAERS Safety Report 10094048 (Version 4)
Quarter: 2014Q3

REPORT INFORMATION
  Report Type: Spontaneous
  Country: BR (occurrence: BR)
  Receive Date: 20140422
  Receipt Date: 20140724
  Transmission Date: 20150326
  Serious: Yes (Other)
  Sender: FDA-Public Use
  Company Number: BR-AMGEN INC.-BRASP2014029080

PATIENT
  Age: 47 Year
  Sex: Male

DRUGS (1)
  1. ENBREL [Suspect]
     Active Substance: ETANERCEPT
     Indication: ANKYLOSING SPONDYLITIS
     Dosage: 50 MG (ONE APPLICATION), PER WEEK
     Route: 065
     Dates: start: 201403, end: 201406

REACTIONS (11)
  - Sluggishness [Unknown]
  - Musculoskeletal stiffness [Unknown]
  - Inflammation [Not Recovered/Not Resolved]
  - Dysentery [Not Recovered/Not Resolved]
  - Abdominal pain [Not Recovered/Not Resolved]
  - Abdominal pain upper [Unknown]
  - Dizziness [Unknown]
  - Blood iron increased [Unknown]
  - Gastrointestinal perforation [Not Recovered/Not Resolved]
  - Impaired work ability [Not Recovered/Not Resolved]
  - Viral infection [Not Recovered/Not Resolved]

NARRATIVE: CASE EVENT DATE: 2014
